FAERS Safety Report 7265954-7 (Version None)
Quarter: 2011Q1

REPORT INFORMATION
  Report Type: 
  Country: None (occurrence: None)
  Receive Date: 20110131
  Receipt Date: 20110121
  Transmission Date: 20110831
  Serious: Yes (Other)
  Sender: FDA-Public Use
  Company Number: JP-PFIZER INC-2011015885

PATIENT
  Age: 89 Year
  Sex: Female

DRUGS (9)
  1. LYRICA [Suspect]
     Indication: BACK PAIN
     Dosage: 75 MG, 2X/DAY
     Route: 048
     Dates: start: 20101217, end: 20101227
  2. PLAVIX [Concomitant]
  3. TAKEPRON [Concomitant]
  4. LASIX [Concomitant]
  5. GASMOTIN [Concomitant]
  6. ASPIRIN [Concomitant]
  7. MEILAX [Concomitant]
  8. ARTIST [Concomitant]
  9. HERBESSER ^DELTA^ [Concomitant]

REACTIONS (5)
  - BRADYPHRENIA [None]
  - SINUS CONGESTION [None]
  - CHOKING [None]
  - SOMNOLENCE [None]
  - THINKING ABNORMAL [None]
